FAERS Safety Report 4825629-8 (Version None)
Quarter: 2005Q4

REPORT INFORMATION
  Report Type: 
  Country: None (occurrence: None)
  Receive Date: 20051111
  Receipt Date: 20041105
  Transmission Date: 20060501
  Serious: Yes (Hospitalization)
  Sender: FDA-Public Use
  Company Number: US-ROCHE-385676

PATIENT
  Age: 47 Year
  Sex: Female
  Weight: 60.3 kg

DRUGS (9)
  1. CAPECITABINE [Suspect]
     Dosage: INTERMITTENT TREATMENT (3 WEEK CYCLE- 2 WEEKS TREATMENT, 1 WEEK REST).
     Route: 048
     Dates: start: 20040528, end: 20041026
  2. CAPECITABINE [Suspect]
     Route: 048
     Dates: start: 20041112
  3. PLACEBO [Suspect]
     Dosage: DAY 1 EVERY 3 WEEKS
     Route: 042
     Dates: start: 20050528
  4. OXALIPLATIN [Suspect]
     Dosage: DAY 1 EVERY 3 WEEKS
     Route: 042
     Dates: start: 20050528
  5. ARANESP [Concomitant]
     Dates: start: 20041015, end: 20041015
  6. FERROUS SULFATE TAB [Concomitant]
     Dates: start: 20040528
  7. LUTEIN [Concomitant]
     Dates: start: 20040528
  8. NEULASTA [Concomitant]
     Dates: start: 20041023, end: 20041023
  9. TYLENOL (CAPLET) [Concomitant]
     Dates: start: 20041023, end: 20041023

REACTIONS (3)
  - CELLULITIS [None]
  - INFECTION [None]
  - THROMBOPHLEBITIS SUPERFICIAL [None]
